FAERS Safety Report 11725881 (Version 3)
Quarter: 2019Q4

REPORT INFORMATION
  Report Type: Report from Study
  Country: US (occurrence: US)
  Receive Date: 20151111
  Receipt Date: 20191001
  Transmission Date: 20200122
  Serious: Yes (Death)
  Sender: FDA-Public Use
  Company Number: US-ROCHE-1659320

PATIENT

DRUGS (4)
  1. DUVELISIB [Suspect]
     Active Substance: DUVELISIB
     Dosage: UP TO 12 CYCLES
     Route: 048
  2. DUVELISIB [Suspect]
     Active Substance: DUVELISIB
     Indication: LYMPHOMA
     Dosage: UP TO 12 CYCLES
     Route: 048
  3. DUVELISIB [Suspect]
     Active Substance: DUVELISIB
     Dosage: UP TO 12 CYCLES
     Route: 048
  4. RITUXIMAB. [Suspect]
     Active Substance: RITUXIMAB
     Indication: LYMPHOMA
     Dosage: ON DAY 1 ONCE WEEKLY DURING A 28 DAY CYCLE; 2 CYCLES OF RITUXIMAB WILL BE ADMINISTERED.
     Route: 042

REACTIONS (1)
  - Cardiac arrest [Fatal]
